FAERS Safety Report 18925126 (Version 2)
Quarter: 2021Q1

REPORT INFORMATION
  Report Type: Spontaneous
  Country: US (occurrence: US)
  Receive Date: 20210222
  Receipt Date: 20210322
  Transmission Date: 20210420
  Serious: Yes (Other)
  Sender: FDA-Public Use
  Company Number: US-009507513-2102USA007506

PATIENT
  Age: 7 Year
  Sex: Female

DRUGS (2)
  1. EMEND [Suspect]
     Active Substance: APREPITANT
     Indication: PROPHYLAXIS OF NAUSEA AND VOMITING
     Dosage: WEIGHT?BASED APREPITANT DOSING
     Route: 048
  2. IFOSFAMIDE. [Interacting]
     Active Substance: IFOSFAMIDE
     Indication: GERM CELL NEOPLASM
     Dosage: MORE THAN 2.000 MG/M2/DAY

REACTIONS (2)
  - Neurotoxicity [Recovered/Resolved]
  - Drug interaction [Recovered/Resolved]
